FAERS Safety Report 9846147 (Version 8)
Quarter: 2018Q1

REPORT INFORMATION
  Report Type: Report from Study
  Country: US (occurrence: US)
  Receive Date: 20140127
  Receipt Date: 20180215
  Transmission Date: 20180509
  Serious: Yes (Other)
  Sender: FDA-Public Use
  Company Number: US-SA-2013SA125130

PATIENT
  Age: 65 Year
  Sex: Female

DRUGS (2)
  1. AUBAGIO [Suspect]
     Active Substance: TERIFLUNOMIDE
     Indication: MULTIPLE SCLEROSIS
     Route: 048
     Dates: start: 20130911, end: 20131218
  2. AUBAGIO [Suspect]
     Active Substance: TERIFLUNOMIDE
     Indication: MULTIPLE SCLEROSIS
     Route: 048

REACTIONS (11)
  - Nausea [Unknown]
  - Pelvic fracture [Unknown]
  - Breast cancer [Unknown]
  - Confusional state [Unknown]
  - Bradyphrenia [Unknown]
  - Diarrhoea [Unknown]
  - Memory impairment [Unknown]
  - Herpes zoster [Recovering/Resolving]
  - Fall [Unknown]
  - Influenza like illness [Unknown]
  - Drug dose omission [Unknown]

NARRATIVE: CASE EVENT DATE: 20140101
